FAERS Safety Report 14476796 (Version 3)
Quarter: 2018Q1

REPORT INFORMATION
  Report Type: Spontaneous
  Country: DE (occurrence: DE)
  Receive Date: 20180201
  Receipt Date: 20180312
  Transmission Date: 20180509
  Serious: Yes (Life-Threatening, Hospitalization, Disabling, Other)
  Sender: FDA-Public Use
  Company Number: DE-009507513-1801DEU008204

PATIENT
  Age: 34 Year
  Sex: Female

DRUGS (5)
  1. DESCOVY [Suspect]
     Active Substance: EMTRICITABINE\TENOFOVIR ALAFENAMIDE FUMARATE
     Indication: HIV INFECTION
     Dosage: UNK
     Dates: start: 20171026
  2. TRUVADA [Concomitant]
     Active Substance: EMTRICITABINE\TENOFOVIR DISOPROXIL FUMARATE
     Indication: HIV INFECTION
     Dosage: UNK
     Dates: start: 20151201
  3. TIVICAY [Concomitant]
     Active Substance: DOLUTEGRAVIR SODIUM
     Indication: PRODUCT USED FOR UNKNOWN INDICATION
     Dosage: UNK
     Route: 048
     Dates: start: 20151201
  4. TRIUMEQ [Suspect]
     Active Substance: ABACAVIR SULFATE\DOLUTEGRAVIR SODIUM\LAMIVUDINE
     Indication: HIV INFECTION
     Dosage: 1 DF DOSAGE FORM EVERY DAY
     Dates: start: 20160120, end: 20161028
  5. RALTEGRAVIR POTASSIUM [Suspect]
     Active Substance: RALTEGRAVIR POTASSIUM
     Indication: PRODUCT USED FOR UNKNOWN INDICATION
     Dosage: UNK
     Route: 048
     Dates: start: 20161026

REACTIONS (26)
  - Hyperbilirubinaemia [Recovered/Resolved]
  - Renal failure [Recovered/Resolved]
  - Thyrotoxic crisis [Unknown]
  - Nausea [Unknown]
  - Brain oedema [Recovered/Resolved]
  - Alanine aminotransferase increased [Unknown]
  - Pruritus [Unknown]
  - Liver transplant [Unknown]
  - Fatigue [Unknown]
  - Aspartate aminotransferase increased [Unknown]
  - Hyperthyroidism [Not Recovered/Not Resolved]
  - Hepatic enzyme increased [Recovered/Resolved with Sequelae]
  - Asthenia [Unknown]
  - Acute hepatic failure [Recovered/Resolved with Sequelae]
  - Disturbance in attention [Unknown]
  - Jaundice [Unknown]
  - Gamma-glutamyltransferase increased [Unknown]
  - Circulatory collapse [Unknown]
  - Hepatic encephalopathy [Recovered/Resolved]
  - Liver injury [Unknown]
  - Hepatic necrosis [Unknown]
  - Headache [Unknown]
  - Drug-induced liver injury [Unknown]
  - Hepatic function abnormal [Unknown]
  - Vomiting [Unknown]
  - Coagulopathy [Recovered/Resolved]

NARRATIVE: CASE EVENT DATE: 20160704
